FAERS Safety Report 12273288 (Version 2)
Quarter: 2016Q2

REPORT INFORMATION
  Report Type: Spontaneous
  Country: HR (occurrence: HR)
  Receive Date: 20160415
  Receipt Date: 20160614
  Transmission Date: 20160815
  Serious: Yes (Hospitalization)
  Sender: FDA-Public Use
  Company Number: HR-JNJFOC-20160413664

PATIENT
  Sex: Male

DRUGS (2)
  1. XARELTO [Suspect]
     Active Substance: RIVAROXABAN
     Indication: CEREBROVASCULAR ACCIDENT PROPHYLAXIS
     Route: 048
     Dates: start: 20140409
  2. XARELTO [Suspect]
     Active Substance: RIVAROXABAN
     Indication: ATRIAL FIBRILLATION
     Route: 048
     Dates: start: 20140409

REACTIONS (5)
  - Melaena [Recovered/Resolved]
  - Tachyarrhythmia [Recovered/Resolved]
  - Ulcer haemorrhage [Recovered/Resolved]
  - Blood pressure decreased [Recovered/Resolved]
  - Ulcer [Unknown]

NARRATIVE: CASE EVENT DATE: 201602
